FAERS Safety Report 10347671 (Version 4)
Quarter: 2015Q1

REPORT INFORMATION
  Report Type: Spontaneous
  Country: AU (occurrence: AU)
  Receive Date: 20140729
  Receipt Date: 20150324
  Transmission Date: 20150720
  Serious: Yes (Disabling)
  Sender: FDA-Public Use
  Company Number: AU-009507513-1304AUS008774

PATIENT
  Age: 35 Year
  Sex: Female

DRUGS (1)
  1. CELESTONE CHRONODOSE [Suspect]
     Active Substance: BETAMETHASONE ACETATE\BETAMETHASONE SODIUM PHOSPHATE
     Indication: BACK PAIN
     Dosage: SINGLE INJECTION
     Dates: start: 20130308, end: 20130308

REACTIONS (10)
  - Mental impairment [Unknown]
  - Personality change [Unknown]
  - Cytomegalovirus infection [Unknown]
  - Mood altered [Unknown]
  - Insomnia [Not Recovered/Not Resolved]
  - Erythema infectiosum [Unknown]
  - Mood swings [Unknown]
  - Infectious mononucleosis [Unknown]
  - Agitation [Unknown]
  - Feeling abnormal [Unknown]

NARRATIVE: CASE EVENT DATE: 2013
